FAERS Safety Report 7596336-6 (Version None)
Quarter: 2011Q3

REPORT INFORMATION
  Report Type: 
  Country: None (occurrence: None)
  Receive Date: 20110707
  Receipt Date: 20110629
  Transmission Date: 20111222
  Serious: Yes (Other)
  Sender: FDA-Public Use
  Company Number: US-BAXTER-2009BH006992

PATIENT
  Sex: Male
  Weight: 38 kg

DRUGS (5)
  1. ANTIHEMOPHILIC FACTOR (HUMAN) [Suspect]
     Indication: FACTOR VIII DEFICIENCY
     Route: 065
     Dates: start: 19870101, end: 19890101
  2. HEMOFIL M [Suspect]
     Indication: FACTOR VIII DEFICIENCY
     Route: 042
     Dates: start: 19890101, end: 20090424
  3. ADVATE [Suspect]
     Indication: FACTOR VIII DEFICIENCY
     Route: 065
  4. AMICAR [Concomitant]
     Route: 048
  5. ABILIFY [Concomitant]
     Route: 048

REACTIONS (3)
  - HEPATITIS C [None]
  - HEPATIC CIRRHOSIS [None]
  - HEPATIC NEOPLASM MALIGNANT [None]
